FAERS Safety Report 4749249-9 (Version None)
Quarter: 2005Q3

REPORT INFORMATION
  Report Type: 
  Country: None (occurrence: None)
  Receive Date: 20050817
  Receipt Date: 20050808
  Transmission Date: 20060218
  Serious: Yes (Other)
  Sender: FDA-Public Use
  Company Number: HQWYE043207JUL05

PATIENT
  Age: 73 Year
  Sex: Female

DRUGS (1)
  1. CORDARONE [Suspect]
     Dosage: ORAL
     Route: 048

REACTIONS (2)
  - OPTIC NEUROPATHY [None]
  - RATHKE'S CLEFT CYST [None]
